FAERS Safety Report 24934124 (Version 1)
Quarter: 2025Q1

REPORT INFORMATION
  Report Type: Report from Study
  Country: US (occurrence: US)
  Receive Date: 20250206
  Receipt Date: 20250206
  Transmission Date: 20250409
  Serious: Yes (Other)
  Sender: EXELIXIS
  Company Number: US-EXELIXIS-CABO-24078607

PATIENT
  Age: 77 Year
  Sex: Male

DRUGS (3)
  1. CABOMETYX [Suspect]
     Active Substance: CABOZANTINIB S-MALATE
     Indication: Hepatocellular carcinoma
     Dosage: 60 MG, QD
     Route: 048
     Dates: start: 20240516, end: 20240529
  2. CABOMETYX [Suspect]
     Active Substance: CABOZANTINIB S-MALATE
     Dosage: 60 MG, QOD
     Route: 048
     Dates: start: 20240530
  3. CABOMETYX [Suspect]
     Active Substance: CABOZANTINIB S-MALATE
     Dosage: 60 MG, QD
     Route: 048
     Dates: end: 20240716

REACTIONS (11)
  - Ascites [Unknown]
  - Malignant neoplasm progression [Unknown]
  - Liver function test increased [Recovering/Resolving]
  - Weight decreased [Unknown]
  - Abdominal pain upper [Recovering/Resolving]
  - Constipation [Unknown]
  - Diarrhoea [Unknown]
  - Decreased appetite [Unknown]
  - Abdominal distension [Unknown]
  - Product prescribing issue [Unknown]
  - Inappropriate schedule of product administration [Unknown]

NARRATIVE: CASE EVENT DATE: 20240529
